FAERS Safety Report 8432287-2 (Version None)
Quarter: 2012Q2

REPORT INFORMATION
  Report Type: 
  Country: None (occurrence: None)
  Receive Date: 20120613
  Receipt Date: 20120608
  Transmission Date: 20120825
  Serious: Yes (Hospitalization, Other)
  Sender: FDA-Public Use
  Company Number: PHHY2012JP049956

PATIENT
  Age: 61 Year
  Sex: Female

DRUGS (1)
  1. VALSARTAN [Suspect]
     Route: 048

REACTIONS (4)
  - BLOOD CREATININE INCREASED [None]
  - SMALL BOWEL ANGIOEDEMA [None]
  - BLOOD PRESSURE INCREASED [None]
  - BLOOD UREA INCREASED [None]
